FAERS Safety Report 9786714 (Version 2)
Quarter: 2014Q1

REPORT INFORMATION
  Report Type: Report from Study
  Country: FR (occurrence: FR)
  Receive Date: 20131227
  Receipt Date: 20140211
  Transmission Date: 20141002
  Serious: Yes (Other)
  Sender: FDA-Public Use
  Company Number: FR-CELGENEUS-056-C4047-13123558

PATIENT
  Age: 75 Year
  Sex: Male
  Weight: 65 kg

DRUGS (3)
  1. CC-4047 [Suspect]
     Indication: PLASMA CELL MYELOMA
     Route: 048
     Dates: start: 20130827
  2. DEXAMETHASONE [Concomitant]
     Indication: PRODUCT USED FOR UNKNOWN INDICATION
     Route: 065
  3. KARDEGIC [Concomitant]
     Indication: PROPHYLAXIS
     Route: 065

REACTIONS (6)
  - Spinal compression fracture [Unknown]
  - Anaemia [Unknown]
  - Thyroid function test abnormal [Unknown]
  - Neutrophil count decreased [Unknown]
  - Plasma cell myeloma [Unknown]
  - Platelet disorder [Unknown]
